FAERS Safety Report 5785434-5 (Version None)
Quarter: 2008Q2

REPORT INFORMATION
  Report Type: 
  Country: None (occurrence: None)
  Receive Date: 20080624
  Receipt Date: 20070924
  Transmission Date: 20081010
  Serious: No
  Sender: FDA-Public Use
  Company Number: US-ASTRAZENECA-2005UW05789

PATIENT
  Age: 72 Year
  Sex: Female
  Weight: 56.8 kg

DRUGS (3)
  1. PULMICORT [Suspect]
     Indication: ASTHMA
     Dosage: 1 PUFF DAILY
     Route: 055
  2. CARDIZEM [Concomitant]
  3. WARFARIN SODIUM [Concomitant]

REACTIONS (2)
  - DYSPHONIA [None]
  - HEART RATE IRREGULAR [None]
